FAERS Safety Report 8946050 (Version 1)
Quarter: 2012Q4

REPORT INFORMATION
  Report Type: 
  Country: US (occurrence: US)
  Receive Date: 20121204
  Receipt Date: 20121204
  Transmission Date: 20130627
  Serious: No
  Sender: FDA-Public Use
  Company Number: US-AMGEN-USASP2012074915

PATIENT
  Sex: Male

DRUGS (2)
  1. ENBREL [Suspect]
     Indication: RHEUMATOID ARTHRITIS
     Dosage: 25 mg, biweekly
     Dates: start: 20100201, end: 20121009
  2. REMICADE [Concomitant]
     Indication: PAIN
     Dosage: UNK

REACTIONS (2)
  - Therapeutic response decreased [Not Recovered/Not Resolved]
  - Pain [Not Recovered/Not Resolved]
